FAERS Safety Report 5413915-2 (Version None)
Quarter: 2007Q3

REPORT INFORMATION
  Report Type: 
  Country: None (occurrence: None)
  Receive Date: 20070810
  Receipt Date: 20070726
  Transmission Date: 20080115
  Serious: Yes (Hospitalization)
  Sender: FDA-Public Use
  Company Number: 100#03#2007-02885

PATIENT
  Age: 73 Year
  Sex: Male

DRUGS (10)
  1. DESMOPRESSIN ACETATE [Suspect]
     Indication: DIABETES INSIPIDUS
     Dosage: 200 UG TWICE DAILY ORAL
     Route: 048
  2. AMITRIPTLINE HCL [Suspect]
     Indication: SEDATION
     Dosage: 20 MG (1 / 1DAYS) ORAL
     Route: 048
  3. ADCAL-D3 (CALCIUM CARBONATE, CHOLECALCIFEROL, , , ) [Concomitant]
  4. ALENDRONIC ACID (ALENDRONIC ACID) (ALENDRONIC ACID) [Concomitant]
  5. ACETYLSALICYLIC ACID (ACETYLSALICYLIC ACID) (ACETYLSALICYLIC ACID) [Concomitant]
  6. ATORVASTATIN (ATORVASTATIN) (ATORVASTATIN) [Concomitant]
  7. AZATHIOPRINE [Concomitant]
  8. METFORMIN (METFORMIN) (METFORMIN) [Concomitant]
  9. PREDNISOLONE [Concomitant]
  10. TRAMADOL HCL [Concomitant]

REACTIONS (1)
  - BLOOD SODIUM DECREASED [None]
